FAERS Safety Report 11213156 (Version 1)
Quarter: 2015Q2

REPORT INFORMATION
  Report Type: Spontaneous
  Country: US (occurrence: US)
  Receive Date: 20150623
  Receipt Date: 20150623
  Transmission Date: 20150821
  Serious: No
  Sender: FDA-Public Use
  Company Number: US-TARO-2014TAR00183

PATIENT
  Age: 4 Year
  Sex: Male

DRUGS (1)
  1. CETIRIZINE HCL [Suspect]
     Active Substance: CETIRIZINE HYDROCHLORIDE
     Indication: HYPERSENSITIVITY
     Dosage: UNK, TWICE
     Route: 048
     Dates: start: 20140723

REACTIONS (3)
  - Fatigue [Unknown]
  - Hangover [Unknown]
  - Hypersensitivity [Unknown]

NARRATIVE: CASE EVENT DATE: 20140724
